FAERS Safety Report 13106677 (Version 1)
Quarter: 2017Q1

REPORT INFORMATION
  Report Type: Report from Study
  Country: CO (occurrence: CO)
  Receive Date: 20170111
  Receipt Date: 20170111
  Transmission Date: 20170428
  Serious: Yes (Death, Other)
  Sender: FDA-Public Use
  Company Number: CO-ELI_LILLY_AND_COMPANY-CO201612001879

PATIENT
  Age: 67 Year
  Sex: Female

DRUGS (1)
  1. FORTEO [Suspect]
     Active Substance: TERIPARATIDE
     Indication: PRODUCT USED FOR UNKNOWN INDICATION
     Dosage: UNK, UNKNOWN
     Route: 065

REACTIONS (6)
  - Renal impairment [Unknown]
  - Mineral deficiency [Unknown]
  - Death [Fatal]
  - Blood potassium decreased [Unknown]
  - Dehydration [Unknown]
  - Fluid retention [Unknown]

NARRATIVE: CASE EVENT DATE: 201604
